FAERS Safety Report 11648145 (Version 1)
Quarter: 2015Q4

REPORT INFORMATION
  Report Type: Spontaneous
  Country: US (occurrence: None)
  Receive Date: 20151020
  Receipt Date: 20151020
  Transmission Date: 20160304
  Serious: Yes (Disabling)
  Sender: FDA-Public Use
  Company Number: None

PATIENT
  Age: 65 Year
  Sex: Female
  Weight: 70.31 kg

DRUGS (25)
  1. OMEPRAZOLE. [Concomitant]
     Active Substance: OMEPRAZOLE
  2. MORPHINE SULFATE ER [Suspect]
     Active Substance: MORPHINE SULFATE
     Indication: MITOCHONDRIAL MYOPATHY
     Dosage: 15 MG?60?TWICE DAILY?BY MOUTH
     Route: 048
     Dates: start: 20150907, end: 20150930
  3. MORPHINE (MS CONTIN) [Concomitant]
  4. MULTIVITAMIN (VITAMIN B COMPLEX) [Concomitant]
  5. TYPE-IN MEDICATION (POLYVYTAMYN) [Concomitant]
  6. ESTRADIOL. [Concomitant]
     Active Substance: ESTRADIOL
  7. GLIPIZIDE. [Concomitant]
     Active Substance: GLIPIZIDE
  8. ZOLOFT [Concomitant]
     Active Substance: SERTRALINE HYDROCHLORIDE
  9. TYPE-IN MEDICATIO (PROBIOTICS) [Concomitant]
  10. CYCLOBENZAPRINE (CYCLOBENZAPRINE ) [Concomitant]
  11. LITHIUM. [Concomitant]
     Active Substance: LITHIUM
  12. PILOCARPINE (SALAGEN) [Concomitant]
  13. PILOCARPINE (SALAGEN) [Concomitant]
  14. PRIMIDINE (MYSOLINE) [Concomitant]
  15. TYPE IN MEDICATION (CREATINE) [Concomitant]
  16. MORPHINE SULFATE ER [Suspect]
     Active Substance: MORPHINE SULFATE
     Indication: PAIN
     Dosage: 15 MG?60?TWICE DAILY?BY MOUTH
     Route: 048
     Dates: start: 20150907, end: 20150930
  17. CHOLECAL (VITAMIN D3 ) [Concomitant]
  18. OMEGA-2 POLYUNSATURATED FATTY ACIDS (FISH OIL ) [Concomitant]
  19. UBIQUINONE [Concomitant]
  20. DICYCLOMINE [Concomitant]
     Active Substance: DICYCLOMINE HYDROCHLORIDE
  21. GABAPENTIN (NEURONTIN) [Concomitant]
  22. THIOTHIXENE. [Concomitant]
     Active Substance: THIOTHIXENE
  23. DULOXETINE (CYMBALTA) [Concomitant]
  24. FLUTICASONE NASAL (FLONASE ) [Concomitant]
  25. HYDROCHLOROTHIAZIDE-TRIAMTERENE (DYAZIDE) [Concomitant]

REACTIONS (4)
  - Product quality issue [None]
  - Product substitution issue [None]
  - Constipation [None]
  - Bedridden [None]

NARRATIVE: CASE EVENT DATE: 20150910
